FAERS Safety Report 9753312 (Version 5)
Quarter: 2014Q1

REPORT INFORMATION
  Report Type: Spontaneous
  Country: US (occurrence: US)
  Receive Date: 20131213
  Receipt Date: 20140206
  Transmission Date: 20141002
  Serious: Yes (Other)
  Sender: FDA-Public Use
  Company Number: US-PFIZER INC-2013355158

PATIENT
  Age: 73 Year
  Sex: Female
  Weight: 45 kg

DRUGS (2)
  1. CORTEF [Suspect]
     Indication: ADRENAL INSUFFICIENCY
     Dosage: 5 MG, 1X/DAY
     Route: 048
  2. CORTEF [Suspect]
     Dosage: 5 MG, 2X/DAY
     Route: 048

REACTIONS (22)
  - Hypersensitivity [Unknown]
  - Angina pectoris [Unknown]
  - Dyspnoea [Not Recovered/Not Resolved]
  - Blood pressure decreased [Not Recovered/Not Resolved]
  - Anxiety [Unknown]
  - Lung disorder [Not Recovered/Not Resolved]
  - Dyspepsia [Unknown]
  - Headache [Not Recovered/Not Resolved]
  - Heart rate decreased [Unknown]
  - Nervousness [Unknown]
  - Mood altered [Unknown]
  - Drug intolerance [Unknown]
  - Cardiac disorder [Not Recovered/Not Resolved]
  - Bone pain [Unknown]
  - Feeling of relaxation [Unknown]
  - Somnolence [Unknown]
  - Insomnia [Unknown]
  - Asthenia [Unknown]
  - Chills [Unknown]
  - Eye disorder [Unknown]
  - Dizziness [Unknown]
  - Product physical issue [Unknown]
